FAERS Safety Report 6844271-0 (Version None)
Quarter: 2010Q2

REPORT INFORMATION
  Report Type: 
  Country: None (occurrence: None)
  Receive Date: 20100629
  Receipt Date: 20100308
  Transmission Date: 20101027
  Serious: No
  Sender: FDA-Public Use
  Company Number: US-WYE-H14012610

PATIENT
  Age: 61 Year
  Sex: Female
  Weight: 61.29 kg

DRUGS (4)
  1. PRISTIQ [Suspect]
     Indication: DEPRESSION
     Dosage: 50 MG 1X PER 1 DAY, ORAL
     Route: 048
     Dates: start: 20091201
  2. CRESTOR [Concomitant]
  3. VITAMINS NOS (VITAMINS NOS) [Concomitant]
  4. EVISTA [Concomitant]

REACTIONS (2)
  - DIZZINESS [None]
  - VOMITING [None]
